FAERS Safety Report 17796628 (Version 1)
Quarter: 2020Q2

REPORT INFORMATION
  Report Type: Spontaneous
  Country: US (occurrence: US)
  Receive Date: 20200518
  Receipt Date: 20200518
  Transmission Date: 20200714
  Serious: No
  Sender: FDA-Public Use
  Company Number: US-ASTRAZENECA-2020SE54095

PATIENT
  Age: 25646 Day
  Sex: Female
  Weight: 136.1 kg

DRUGS (1)
  1. BYDUREON BCISE [Suspect]
     Active Substance: EXENATIDE
     Indication: TYPE 2 DIABETES MELLITUS
     Route: 058
     Dates: start: 2018

REACTIONS (4)
  - Injection site extravasation [Unknown]
  - Drug dose omission by device [Not Recovered/Not Resolved]
  - Injury associated with device [Unknown]
  - Device malfunction [Unknown]

NARRATIVE: CASE EVENT DATE: 20200507
